FAERS Safety Report 5340665-3 (Version None)
Quarter: 2007Q2

REPORT INFORMATION
  Report Type: 
  Country: None (occurrence: None)
  Receive Date: 20070405
  Receipt Date: 20061214
  Transmission Date: 20071010
  Serious: No
  Sender: FDA-Public Use
  Company Number: US200612002517

PATIENT
  Age: 64 Year
  Sex: Male

DRUGS (9)
  1. CYMBALTA [Suspect]
     Indication: ANXIETY
     Dosage: SEE IMAGE
     Route: 048
     Dates: start: 20061204, end: 20061204
  2. CYMBALTA [Suspect]
     Indication: ANXIETY
     Dosage: SEE IMAGE
     Route: 048
     Dates: start: 20061205, end: 20061212
  3. CYMBALTA [Suspect]
     Indication: ANXIETY
     Dosage: SEE IMAGE
     Route: 048
     Dates: start: 20061213
  4. HYZAAR [Concomitant]
  5. ASPIRIN [Concomitant]
  6. ACIPHEX [Concomitant]
  7. AMBIEN [Concomitant]
  8. ESZOPICLONE (ESZOPICLONE) [Concomitant]
  9. TOPROL-XL [Concomitant]

REACTIONS (9)
  - ANOREXIA [None]
  - COMMUNICATION DISORDER [None]
  - FATIGUE [None]
  - FEELING ABNORMAL [None]
  - HYPERHIDROSIS [None]
  - NAUSEA [None]
  - PALPITATIONS [None]
  - SOMNOLENCE [None]
  - TREMOR [None]
